FAERS Safety Report 5492326-8 (Version None)
Quarter: 2007Q4

REPORT INFORMATION
  Report Type: 
  Country: None (occurrence: None)
  Receive Date: 20071022
  Receipt Date: 20071015
  Transmission Date: 20080405
  Serious: Yes (Life-Threatening, Hospitalization)
  Sender: FDA-Public Use
  Company Number: SK-AVENTIS-200714866EU

PATIENT
  Age: 61 Year
  Sex: Male
  Weight: 82 kg

DRUGS (6)
  1. CLEXANE [Suspect]
     Route: 058
     Dates: start: 20070911, end: 20070914
  2. PLAVIX [Suspect]
     Route: 048
     Dates: start: 20070911, end: 20070911
  3. PLAVIX [Suspect]
     Route: 048
     Dates: start: 20070911, end: 20070914
  4. ANOPYRIN [Suspect]
     Route: 048
     Dates: end: 20070914
  5. ANOPYRIN [Suspect]
     Route: 048
     Dates: end: 20070914
  6. ORAL ANTIDIABETICS [Concomitant]
     Route: 048

REACTIONS (3)
  - DRUG INTERACTION [None]
  - GASTRIC ULCER HAEMORRHAGE [None]
  - SHOCK HAEMORRHAGIC [None]
